FAERS Safety Report 13905396 (Version 1)
Quarter: 2017Q3

REPORT INFORMATION
  Report Type: Spontaneous
  Country: US (occurrence: None)
  Receive Date: 20170821
  Receipt Date: 20170821
  Transmission Date: 20171127
  Serious: Yes (Other)
  Sender: FDA-Public Use
  Company Number: None

PATIENT
  Age: 77 Year
  Sex: Female

DRUGS (7)
  1. LONSURF [Suspect]
     Active Substance: TIPIRACIL HYDROCHLORIDE\TRIFLURIDINE
     Indication: COLON CANCER
     Route: 048
     Dates: start: 20170602
  2. OXYCODONE [Concomitant]
     Active Substance: OXYCODONE
  3. ONDANSETRON [Concomitant]
     Active Substance: ONDANSETRON
  4. LIDOCAINE. [Concomitant]
     Active Substance: LIDOCAINE
  5. FENTANYL. [Concomitant]
     Active Substance: FENTANYL
  6. NITROFUR MAC [Concomitant]
     Active Substance: NITROFURANTOIN
  7. METOCLOPRAM [Concomitant]
     Active Substance: METOCLOPRAMIDE

REACTIONS (2)
  - Disease progression [None]
  - Therapy cessation [None]
